FAERS Safety Report 10032529 (Version 1)
Quarter: 2014Q1

REPORT INFORMATION
  Report Type: Report from Study
  Country: US (occurrence: US)
  Receive Date: 20140324
  Receipt Date: 20140324
  Transmission Date: 20141002
  Serious: Yes (Other)
  Sender: FDA-Public Use
  Company Number: US-BRISTOL-MYERS SQUIBB COMPANY-20474417

PATIENT
  Age: 60 Year
  Sex: Female
  Weight: 52.61 kg

DRUGS (2)
  1. ABATACEPT SUBQ INJECTION 125MG/ML [Suspect]
     Indication: RHEUMATOID ARTHRITIS
     Dosage: RECENT DOSE:DEC2013
     Route: 058
     Dates: start: 201311
  2. PREDNISONE [Concomitant]

REACTIONS (6)
  - Pyrexia [Unknown]
  - Dehydration [Unknown]
  - Drug ineffective [Unknown]
  - Ulcer [Unknown]
  - Weight decreased [Unknown]
  - Cough [Unknown]
